FAERS Safety Report 13943348 (Version 1)
Quarter: 2017Q3

REPORT INFORMATION
  Report Type: Spontaneous
  Country: ZA (occurrence: ZA)
  Receive Date: 20170907
  Receipt Date: 20170907
  Transmission Date: 20171128
  Serious: Yes (Hospitalization)
  Sender: FDA-Public Use
  Company Number: PHHY2017ZA129724

PATIENT
  Sex: Male

DRUGS (1)
  1. INDAPAMIDE SANDOZ [Suspect]
     Active Substance: INDAPAMIDE
     Indication: ULCER
     Dosage: 2.5 MG, UNK
     Route: 048

REACTIONS (2)
  - Hypertension [Unknown]
  - Blood glucose increased [Unknown]
